FAERS Safety Report 5985263-3 (Version None)
Quarter: 2008Q4

REPORT INFORMATION
  Report Type: 
  Country: None (occurrence: None)
  Receive Date: 20081203
  Receipt Date: 20081125
  Transmission Date: 20090506
  Serious: Yes (Other)
  Sender: FDA-Public Use
  Company Number: 037323

PATIENT
  Age: 37 Year
  Sex: Female
  Weight: 61.2 kg

DRUGS (1)
  1. PLAN B [Suspect]
     Indication: CONTRACEPTION
     Dosage: 1 TABLET, Q12H, ORAL
     Route: 048
     Dates: start: 20080322, end: 20080323

REACTIONS (5)
  - ABORTION SPONTANEOUS [None]
  - DRUG EXPOSURE DURING PREGNANCY [None]
  - FATIGUE [None]
  - PELVIC PAIN [None]
  - UNINTENDED PREGNANCY [None]
